FAERS Safety Report 7693584-1 (Version None)
Quarter: 2011Q3

REPORT INFORMATION
  Report Type: 
  Country: None (occurrence: None)
  Receive Date: 20110819
  Receipt Date: 20110808
  Transmission Date: 20111222
  Serious: Yes (Other)
  Sender: FDA-Public Use
  Company Number: PHFR2011GB04344

PATIENT

DRUGS (1)
  1. TEGRETOL-XR [Suspect]
     Dosage: UNK
     Route: 065

REACTIONS (1)
  - EPILEPSY [None]
